FAERS Safety Report 5168692-X (Version None)
Quarter: 2006Q4

REPORT INFORMATION
  Report Type: 
  Country: None (occurrence: None)
  Receive Date: 20061206
  Receipt Date: 20061206
  Transmission Date: 20070319
  Serious: Yes (Other)
  Sender: FDA-Public Use
  Company Number: None

PATIENT
  Age: 84 Year
  Sex: Male
  Weight: 95.3 kg

DRUGS (1)
  1. LOVENOX [Suspect]

REACTIONS (1)
  - HAEMORRHAGE [None]
